FAERS Safety Report 6439043-5 (Version None)
Quarter: 2009Q4

REPORT INFORMATION
  Report Type: 
  Country: None (occurrence: None)
  Receive Date: 20091111
  Receipt Date: 20091111
  Transmission Date: 20100525
  Serious: Yes (Other)
  Sender: FDA-Public Use
  Company Number: None

PATIENT
  Age: 46 Year
  Sex: Male
  Weight: 86.1834 kg

DRUGS (1)
  1. TAMIFLU [Suspect]
     Indication: INFLUENZA LIKE ILLNESS
     Dosage: 1 CAPSULE TWICE DAILY/5DAYS PO; 2 CAPSULES TOTAL TAKEN
     Route: 048
     Dates: start: 20091109, end: 20091110

REACTIONS (1)
  - RASH [None]
